FAERS Safety Report 10099506 (Version 4)
Quarter: 2014Q3

REPORT INFORMATION
  Report Type: Spontaneous
  Country: GB (occurrence: GB)
  Receive Date: 20140423
  Receipt Date: 20140706
  Transmission Date: 20150326
  Serious: Yes (Death)
  Sender: FDA-Public Use
  Company Number: PHFR2014GB002968

PATIENT
  Sex: Male
  Weight: 80.4 kg

DRUGS (8)
  1. FLUOXETINE [Suspect]
     Active Substance: FLUOXETINE\FLUOXETINE HYDROCHLORIDE
     Indication: SCHIZOPHRENIA, PARANOID TYPE
     Dosage: 40 MG, DAILY
     Route: 048
  2. SIMVASTATIN. [Concomitant]
     Active Substance: SIMVASTATIN
     Dosage: 40 MG, DAILY
     Route: 048
  3. ARIPIPRAZOLE [Suspect]
     Active Substance: ARIPIPRAZOLE
     Indication: SCHIZOPHRENIA, PARANOID TYPE
     Dosage: 5 MG, DAILY
     Route: 048
  4. LACTULOSE. [Concomitant]
     Active Substance: LACTULOSE
     Dosage: 15 ML, QD, DAILY
     Route: 048
  5. CLOZARIL [Suspect]
     Active Substance: CLOZAPINE
     Indication: SCHIZOPHRENIA, PARANOID TYPE
     Dosage: 400 MG, (100 MG MANE AND 300 MG NOCTE), DAILY
     Route: 048
     Dates: start: 20010701
  6. ASPIRIN. [Suspect]
     Active Substance: ASPIRIN
     Dosage: 75 MG, DAILY
     Route: 048
  7. METFORMIN [Suspect]
     Active Substance: METFORMIN HYDROCHLORIDE
     Dosage: 1 G, BID, TWICE DAILY
     Route: 048
  8. FYBOGEL [Concomitant]
     Active Substance: PLANTAGO OVATA SEED
     Dosage: 1 G, QD, DAILY
     Route: 048

REACTIONS (6)
  - Myocardial ischaemia [Fatal]
  - Death [Fatal]
  - Arteriosclerosis coronary artery [Fatal]
  - Myocardial infarction [Fatal]
  - Type 2 diabetes mellitus [Fatal]
  - Blood cholesterol increased [Unknown]
